FAERS Safety Report 10192663 (Version 1)
Quarter: 2014Q2

REPORT INFORMATION
  Report Type: Spontaneous
  Country: IT (occurrence: IT)
  Receive Date: 20140523
  Receipt Date: 20140523
  Transmission Date: 20141212
  Serious: Yes (Death)
  Sender: FDA-Public Use
  Company Number: IT-CELGENEUS-083-50794-14052502

PATIENT
  Sex: 0

DRUGS (1)
  1. VIDAZA [Suspect]
     Indication: PRODUCT USED FOR UNKNOWN INDICATION
     Route: 041

REACTIONS (1)
  - Multi-organ failure [Fatal]
